FAERS Safety Report 15099085 (Version 5)
Quarter: 2018Q3

REPORT INFORMATION
  Report Type: Report from Study
  Country: US (occurrence: US)
  Receive Date: 20180702
  Receipt Date: 20180816
  Transmission Date: 20181010
  Serious: Yes (Hospitalization, Other)
  Sender: FDA-Public Use
  Company Number: US-GILEAD-2018-0347947

PATIENT
  Age: 34 Year
  Sex: Female
  Weight: 68.27 kg

DRUGS (19)
  1. PERCOCET                           /00446701/ [Concomitant]
     Active Substance: ACETAMINOPHEN\OXYCODONE HYDROCHLORIDE\OXYCODONE TEREPHTHALATE
  2. RITUXAN [Concomitant]
     Active Substance: RITUXIMAB
  3. AMBRISENTAN [Suspect]
     Active Substance: AMBRISENTAN
     Indication: PULMONARY HYPERTENSION
     Dosage: 5 MG, QD
     Route: 048
     Dates: start: 20180426
  4. REMODULIN [Suspect]
     Active Substance: TREPROSTINIL
     Indication: PULMONARY HYPERTENSION
     Dosage: 35.3 NG, Q1MINUTE
     Route: 065
     Dates: start: 20160719
  5. DEMADEX [Concomitant]
     Active Substance: TORSEMIDE
  6. PROTONIX                           /00661201/ [Concomitant]
     Active Substance: OMEPRAZOLE
  7. ADEMPAS [Suspect]
     Active Substance: RIOCIGUAT
     Indication: PULMONARY HYPERTENSION
     Dosage: 1 MG, TID
     Route: 065
     Dates: start: 20180605
  8. K?DUR [Concomitant]
     Active Substance: POTASSIUM CHLORIDE
  9. VELETRI [Concomitant]
     Active Substance: EPOPROSTENOL
  10. REMODULIN [Suspect]
     Active Substance: TREPROSTINIL
     Dosage: UNK
     Route: 065
     Dates: start: 20180710
  11. FERROUS SULFATE. [Concomitant]
     Active Substance: FERROUS SULFATE
  12. IMODIUM A?D [Concomitant]
     Active Substance: LOPERAMIDE HYDROCHLORIDE
  13. OCEAN SALINE NASAL SPRAY [Concomitant]
     Active Substance: SODIUM CHLORIDE
  14. ETONOGESTREL [Concomitant]
     Active Substance: ETONOGESTREL
  15. PRILOSEC [Concomitant]
     Active Substance: OMEPRAZOLE MAGNESIUM
  16. DELTASONE                          /00016001/ [Concomitant]
     Active Substance: DEXAMETHASONE
  17. TYLENOL [Concomitant]
     Active Substance: ACETAMINOPHEN
  18. AUGMENTIN [Concomitant]
     Active Substance: AMOXICILLIN\CLAVULANATE POTASSIUM
  19. PLAQUENIL                          /00072602/ [Concomitant]
     Active Substance: HYDROXYCHLOROQUINE DIPHOSPHATE

REACTIONS (5)
  - Weight decreased [Unknown]
  - Right ventricular failure [Unknown]
  - Epistaxis [Recovered/Resolved]
  - Haematocrit decreased [Unknown]
  - Haemoglobin decreased [Unknown]

NARRATIVE: CASE EVENT DATE: 20180627
